FAERS Safety Report 6935734-8 (Version None)
Quarter: 2010Q3

REPORT INFORMATION
  Report Type: 
  Country: None (occurrence: None)
  Receive Date: 20100819
  Receipt Date: 20100819
  Transmission Date: 20110219
  Serious: No
  Sender: FDA-Public Use
  Company Number: None

PATIENT
  Age: 38 Year
  Sex: Female
  Weight: 53.978 kg

DRUGS (1)
  1. K-Y YOURS AND MINE UNKNOWN K-Y [Suspect]
     Dates: start: 20100816, end: 20100816

REACTIONS (1)
  - APPLICATION SITE PAIN [None]
